FAERS Safety Report 9482821 (Version 2)
Quarter: 2013Q3

REPORT INFORMATION
  Report Type: Report from Study
  Country: US (occurrence: US)
  Receive Date: 20130828
  Receipt Date: 20130916
  Transmission Date: 20140515
  Serious: Yes (Hospitalization)
  Sender: FDA-Public Use
  Company Number: US-ACTELION-A-NJ2013-87496

PATIENT
  Age: 73 Year
  Sex: Female

DRUGS (3)
  1. VELETRI [Suspect]
     Indication: PULMONARY ARTERIAL HYPERTENSION
     Dosage: 10.9 NG/KG, PER MIN
     Route: 042
     Dates: start: 20090108
  2. FLOLAN [Concomitant]
  3. SILDENAFIL [Concomitant]

REACTIONS (2)
  - Fall [Unknown]
  - Upper limb fracture [Unknown]
